FAERS Safety Report 9206860 (Version 1)
Quarter: 2013Q2

REPORT INFORMATION
  Report Type: Spontaneous
  Country: US (occurrence: US)
  Receive Date: 20130403
  Receipt Date: 20130403
  Transmission Date: 20140414
  Serious: Yes (Hospitalization)
  Sender: FDA-Public Use
  Company Number: US-AMGEN-USASP2013022295

PATIENT
  Age: 56 Year
  Sex: Female

DRUGS (1)
  1. ENBREL [Suspect]
     Indication: PSORIATIC ARTHROPATHY
     Dosage: 50 MG, QWK (TWO 25 MG MUV VIALS ON THE SAME DAY, WEEKLY)
     Dates: end: 20130306

REACTIONS (4)
  - Arthralgia [Recovered/Resolved]
  - Incision site pain [Not Recovered/Not Resolved]
  - Post procedural infection [Unknown]
  - Injection site pain [Unknown]
